FAERS Safety Report 8027981-1 (Version None)
Quarter: 2012Q1

REPORT INFORMATION
  Report Type: 
  Country: None (occurrence: None)
  Receive Date: 20120104
  Receipt Date: 20111228
  Transmission Date: 20120608
  Serious: Yes (Death)
  Sender: FDA-Public Use
  Company Number: ADR-2011-11865

PATIENT
  Age: 48 Year
  Sex: Female

DRUGS (4)
  1. DILAUDID [Concomitant]
  2. DROPERIDOL [Concomitant]
  3. BACLOFEN [Suspect]
     Indication: CANCER PAIN
     Dosage: 59.96 MCG/DAY, INTRATH.
     Route: 037
  4. BUPIVACAINE HCL [Concomitant]

REACTIONS (2)
  - LUNG NEOPLASM MALIGNANT [None]
  - CONDITION AGGRAVATED [None]
